FAERS Safety Report 9373724 (Version 1)
Quarter: 2013Q2

REPORT INFORMATION
  Report Type: Report from Study
  Country: IN (occurrence: IN)
  Receive Date: 20130627
  Receipt Date: 20130627
  Transmission Date: 20140414
  Serious: Yes (Other)
  Sender: FDA-Public Use
  Company Number: IN-BAXTER-2013BAX024545

PATIENT
  Sex: 0

DRUGS (2)
  1. FIBERIN SEALANT KIT, FREEZE DRIED, (TISSEEL, KIT) [Suspect]
     Indication: ANAL FISTULA
     Route: 065
  2. FIBERIN SEALANT KIT, FREEZE DRIED, (TISSEEL, KIT) [Suspect]
     Indication: OFF LABEL USE
     Route: 065

REACTIONS (3)
  - Drug ineffective [Unknown]
  - Local swelling [Recovered/Resolved]
  - Pain [Recovered/Resolved]
